FAERS Safety Report 14241649 (Version 1)
Quarter: 2017Q4

REPORT INFORMATION
  Report Type: Spontaneous
  Country: US (occurrence: US)
  Receive Date: 20171201
  Receipt Date: 20171201
  Transmission Date: 20180321
  Serious: No
  Sender: FDA-Public Use
  Company Number: US-009507513-1711USA004355

PATIENT
  Age: 39 Year
  Sex: Female
  Weight: 64 kg

DRUGS (1)
  1. ZEMURON [Suspect]
     Active Substance: ROCURONIUM BROMIDE
     Dosage: FIRST DOSE: 5 MG (0.08 MG/KG), SECOND DOSE: 5 MG, PRN
     Route: 042

REACTIONS (2)
  - Therapeutic response increased [Unknown]
  - Exposure during pregnancy [Unknown]
